FAERS Safety Report 13800998 (Version 3)
Quarter: 2017Q3

REPORT INFORMATION
  Report Type: Report from Study
  Country: AT (occurrence: AT)
  Receive Date: 20170727
  Receipt Date: 20170927
  Transmission Date: 20171127
  Serious: Yes (Death, Hospitalization)
  Sender: FDA-Public Use
  Company Number: AT-ELI_LILLY_AND_COMPANY-AT201707007185

PATIENT
  Age: 53 Year
  Sex: Male
  Weight: 56 kg

DRUGS (2)
  1. RAMUCIRUMAB [Suspect]
     Active Substance: RAMUCIRUMAB
     Indication: METASTATIC GASTRIC CANCER
     Dosage: 450 MG, DAY 1 AND 15
     Route: 042
     Dates: start: 20170527, end: 20170707
  2. PACLITAXEL. [Concomitant]
     Active Substance: PACLITAXEL
     Indication: METASTATIC GASTRIC CANCER
     Dosage: UNK
     Dates: start: 20170527

REACTIONS (4)
  - General physical health deterioration [Recovered/Resolved]
  - General physical health deterioration [Not Recovered/Not Resolved]
  - Abdominal pain [Recovered/Resolved]
  - Vomiting [Recovered/Resolved]

NARRATIVE: CASE EVENT DATE: 20170701
